FAERS Safety Report 7206632-X (Version None)
Quarter: 2011Q1

REPORT INFORMATION
  Report Type: 
  Country: None (occurrence: None)
  Receive Date: 20110103
  Receipt Date: 20101226
  Transmission Date: 20110831
  Serious: Yes (Other)
  Sender: FDA-Public Use
  Company Number: IT-JNJFOC-20101208500

PATIENT
  Age: 16 Year
  Sex: Male

DRUGS (1)
  1. HALDOL [Suspect]
     Indication: SELF-MEDICATION
     Route: 048

REACTIONS (4)
  - SELF-MEDICATION [None]
  - DYSTONIA [None]
  - SLUGGISHNESS [None]
  - DYSKINESIA [None]
